FAERS Safety Report 23071592 (Version 1)
Quarter: 2023Q4

REPORT INFORMATION
  Report Type: Report from Study
  Country: US (occurrence: US)
  Receive Date: 20231017
  Receipt Date: 20231017
  Transmission Date: 20240109
  Serious: Yes (Hospitalization)
  Sender: FDA-Public Use
  Company Number: US-ABBVIE-5451600

PATIENT
  Sex: Male

DRUGS (13)
  1. VENCLEXTA [Suspect]
     Active Substance: VENETOCLAX
     Indication: Product used for unknown indication
     Dosage: END DATE 2023
     Route: 048
     Dates: start: 20230916
  2. PAPAYA [Concomitant]
     Active Substance: PAPAYA
     Indication: Product used for unknown indication
  3. VITAMINS [Concomitant]
     Active Substance: VITAMINS
     Indication: Product used for unknown indication
  4. CLOBEX [Concomitant]
     Active Substance: CLOBETASOL PROPIONATE
     Indication: Product used for unknown indication
     Dosage: EXTERNAL LOTION
  5. VITAMIN B1 [Concomitant]
     Active Substance: THIAMINE HYDROCHLORIDE
     Indication: Product used for unknown indication
  6. PROCHLORPERAZINE [Concomitant]
     Active Substance: PROCHLORPERAZINE
     Indication: Product used for unknown indication
  7. VITAMIN B6 [Concomitant]
     Active Substance: PYRIDOXINE HYDROCHLORIDE
     Indication: Product used for unknown indication
  8. VALACYCLOVIR [Concomitant]
     Active Substance: VALACYCLOVIR HYDROCHLORIDE
     Indication: Product used for unknown indication
  9. ACETAMINOPHEN [Concomitant]
     Active Substance: ACETAMINOPHEN
     Indication: Product used for unknown indication
  10. ASCORBIC ACID [Concomitant]
     Active Substance: ASCORBIC ACID
     Indication: Product used for unknown indication
  11. ONDANSETRON [Concomitant]
     Active Substance: ONDANSETRON
     Indication: Product used for unknown indication
  12. DECITABINE [Concomitant]
     Active Substance: DECITABINE
     Indication: Product used for unknown indication
     Route: 042
  13. OXYCODONE [Concomitant]
     Active Substance: OXYCODONE
     Indication: Product used for unknown indication

REACTIONS (1)
  - Pyrexia [Recovering/Resolving]

NARRATIVE: CASE EVENT DATE: 20230101
